FAERS Safety Report 9925072 (Version 1)
Quarter: 2014Q1

REPORT INFORMATION
  Report Type: Spontaneous
  Country: US (occurrence: US)
  Receive Date: 20140226
  Receipt Date: 20140226
  Transmission Date: 20141002
  Serious: Yes (Other)
  Sender: FDA-Public Use
  Company Number: US-BAYER-2014-029295

PATIENT
  Age: 14 Year
  Sex: Female
  Weight: 45 kg

DRUGS (2)
  1. ALEVE CAPLET [Suspect]
     Dosage: 6 DF, ONCE
     Route: 048
     Dates: start: 20140221, end: 20140221
  2. ZOLOFT [Concomitant]

REACTIONS (2)
  - Self injurious behaviour [None]
  - Intentional overdose [None]
